FAERS Safety Report 7248469-1 (Version None)
Quarter: 2011Q1

REPORT INFORMATION
  Report Type: 
  Country: None (occurrence: None)
  Receive Date: 20110127
  Receipt Date: 20110120
  Transmission Date: 20110831
  Serious: Yes (Hospitalization)
  Sender: FDA-Public Use
  Company Number: US-US-EMD SERONO, INC.-237493J08USA

PATIENT
  Sex: Female
  Weight: 85 kg

DRUGS (11)
  1. SYNTHROID [Concomitant]
     Route: 065
  2. REBIF [Suspect]
     Indication: MULTIPLE SCLEROSIS
     Route: 058
     Dates: start: 20030121, end: 20080715
  3. ALLEGRA [Concomitant]
     Route: 065
  4. VITAMIN B-12 [Concomitant]
     Route: 065
  5. MULTI-VITAMIN [Concomitant]
     Route: 065
  6. FLOVENT [Concomitant]
     Route: 065
  7. REBIF [Suspect]
     Route: 058
  8. EVISTA [Concomitant]
     Route: 065
  9. ZOCOR [Concomitant]
     Route: 065
  10. NASACORT [Concomitant]
     Route: 065
  11. VITAMIN D [Concomitant]
     Route: 065

REACTIONS (6)
  - DIVERTICULITIS [None]
  - CLOSTRIDIAL INFECTION [None]
  - ESCHERICHIA INFECTION [None]
  - INCISIONAL HERNIA [None]
  - URINARY TRACT INFECTION [None]
  - DRUG HYPERSENSITIVITY [None]
